FAERS Safety Report 16423626 (Version 1)
Quarter: 2019Q2

REPORT INFORMATION
  Report Type: Spontaneous
  Country: MX (occurrence: MX)
  Receive Date: 20190613
  Receipt Date: 20190613
  Transmission Date: 20190711
  Serious: Yes (Other)
  Sender: FDA-Public Use
  Company Number: MX-UCBSA-2019024303

PATIENT
  Age: 6 Year
  Sex: Female

DRUGS (1)
  1. KEPPRA [Suspect]
     Active Substance: LEVETIRACETAM
     Indication: SEIZURE
     Dosage: UNK
     Dates: start: 2018

REACTIONS (2)
  - Renal tubular acidosis [Unknown]
  - Off label use [Unknown]

NARRATIVE: CASE EVENT DATE: 2018
